FAERS Safety Report 17000110 (Version 1)
Quarter: 2019Q4

REPORT INFORMATION
  Report Type: Report from Study
  Country: None (occurrence: US)
  Receive Date: 20191106
  Receipt Date: 20191106
  Transmission Date: 20200122
  Serious: Yes (Hospitalization)
  Sender: FDA-Public Use
  Company Number: US-ABBVIE-19K-163-2990996-00

PATIENT
  Age: 41 Year
  Sex: Female

DRUGS (2)
  1. MAVYRET [Suspect]
     Active Substance: GLECAPREVIR\PIBRENTASVIR
     Indication: HEPATITIS C
     Dosage: 100/40MG?TOOK 3 TABS A DAY WITH FOOD
     Route: 048
     Dates: start: 20190911
  2. ATORVASTAN [Interacting]
     Active Substance: ATORVASTATIN CALCIUM
     Indication: PRODUCT USED FOR UNKNOWN INDICATION
     Route: 065
     Dates: start: 20191025

REACTIONS (2)
  - Transient ischaemic attack [Unknown]
  - Drug interaction [Unknown]

NARRATIVE: CASE EVENT DATE: 20191024
